FAERS Safety Report 15590877 (Version 2)
Quarter: 2019Q1

REPORT INFORMATION
  Report Type: Spontaneous
  Country: US (occurrence: US)
  Receive Date: 20181107
  Receipt Date: 20190113
  Transmission Date: 20190417
  Serious: Yes (Hospitalization, Other)
  Sender: FDA-Public Use
  Company Number: US-COOPERSURGICAL, INC.-US-2018CPS033132

PATIENT

DRUGS (1)
  1. PARAGARD T 380A [Suspect]
     Active Substance: COPPER
     Indication: CONTRACEPTION
     Dosage: UNK
     Route: 015
     Dates: start: 201610, end: 20180620

REACTIONS (11)
  - Ectopic pregnancy with contraceptive device [Recovered/Resolved]
  - Economic problem [Unknown]
  - Pain [Unknown]
  - Muscle spasms [Recovered/Resolved]
  - Emotional distress [Unknown]
  - Abdominal pain lower [Recovered/Resolved]
  - Drug ineffective [Unknown]
  - General physical health deterioration [Unknown]
  - Haemorrhage [Recovered/Resolved]
  - Pregnancy with contraceptive device [Recovered/Resolved]
  - Vaginal haemorrhage [Recovered/Resolved]

NARRATIVE: CASE EVENT DATE: 2018
